FAERS Safety Report 21210367 (Version 1)
Quarter: 2022Q3

REPORT INFORMATION
  Report Type: Spontaneous
  Country: US (occurrence: US)
  Receive Date: 20220815
  Receipt Date: 20220815
  Transmission Date: 20221027
  Serious: No
  Sender: FDA-Public Use
  Company Number: US-JNJFOC-20220761882

PATIENT
  Age: 72 Year
  Sex: Female
  Weight: 42.676 kg

DRUGS (3)
  1. DARZALEX FASPRO [Suspect]
     Active Substance: DARATUMUMAB\HYALURONIDASE-FIHJ
     Indication: Amyloidosis
     Route: 058
  2. DEXAMETHASONE [Suspect]
     Active Substance: DEXAMETHASONE
     Indication: Product used for unknown indication
     Route: 065
  3. MONTELUKAST [Concomitant]
     Active Substance: MONTELUKAST SODIUM
     Indication: Respiratory disorder
     Route: 065

REACTIONS (9)
  - Urine odour abnormal [Recovered/Resolved]
  - Urine analysis abnormal [Unknown]
  - Diarrhoea [Unknown]
  - Abnormal faeces [Unknown]
  - Asthenia [Unknown]
  - Fatigue [Unknown]
  - Somnolence [Unknown]
  - Eye infection viral [Not Recovered/Not Resolved]
  - Product dose omission issue [Unknown]
